FAERS Safety Report 8367347 (Version 2)
Quarter: 2013Q1

REPORT INFORMATION
  Report Type: Report from Study
  Country: US (occurrence: US)
  Receive Date: 20120128
  Receipt Date: 20130325
  Transmission Date: 20140127
  Serious: Yes (Other)
  Sender: FDA-Public Use
  Company Number: US-ABBOTT-11P-163-0725558-00

PATIENT
  Age: 62 None
  Sex: Female
  Weight: 56.75 kg

DRUGS (17)
  1. HUMIRA [Suspect]
     Indication: PUSTULAR PSORIASIS
     Dates: start: 2010, end: 201101
  2. HUMIRA [Suspect]
     Dates: start: 201101, end: 20130116
  3. UNNAMED ANESTHETIC [Suspect]
     Indication: CATARACT OPERATION
     Dates: start: 20110323, end: 20110323
  4. ASPIRIN [Suspect]
     Indication: CARDIAC DISORDER
  5. CALCIUM [Concomitant]
     Indication: MINERAL SUPPLEMENTATION
  6. CALCIUM [Concomitant]
     Indication: BONE DISORDER
  7. VITAMIN B12 [Concomitant]
     Indication: PRODUCT USED FOR UNKNOWN INDICATION
  8. WELCHOL [Concomitant]
     Indication: BLOOD CHOLESTEROL INCREASED
  9. NATEGLINIDE [Concomitant]
     Indication: DIABETES MELLITUS
  10. FOLIC ACID [Concomitant]
     Indication: PRODUCT USED FOR UNKNOWN INDICATION
  11. INSULIN [Concomitant]
     Indication: DIABETES MELLITUS
     Dosage: FOR BLOOD SUGAR GREATER THAN 140, 2 HOURS POSTPRANDIAL
  12. VITAMIN D [Concomitant]
     Indication: VITAMIN SUPPLEMENTATION
  13. ZETIA [Concomitant]
     Indication: DIABETES MELLITUS
  14. SIMVASTATIN [Concomitant]
     Indication: BLOOD CHOLESTEROL INCREASED
  15. OMEPRAZOLE [Concomitant]
     Indication: GASTRIC DISORDER
  16. UNKNOWN DIABETIC MEDICATION [Concomitant]
     Indication: DIABETES MELLITUS
  17. STOOL SOFTENER [Concomitant]
     Indication: CONSTIPATION

REACTIONS (10)
  - Cataract [Recovered/Resolved]
  - Cataract [Recovered/Resolved]
  - Blister [Not Recovered/Not Resolved]
  - Blood blister [Not Recovered/Not Resolved]
  - Skin exfoliation [Not Recovered/Not Resolved]
  - Haematochezia [Unknown]
  - Gastric ulcer [Unknown]
  - Gastric infection [Unknown]
  - Off label use [Not Recovered/Not Resolved]
  - Pustular psoriasis [Unknown]
